FAERS Safety Report 4314654-1 (Version None)
Quarter: 2004Q1

REPORT INFORMATION
  Report Type: 
  Country: None (occurrence: None)
  Receive Date: 20040308
  Receipt Date: 20040227
  Transmission Date: 20041129
  Serious: Yes (Other)
  Sender: FDA-Public Use
  Company Number: 2004007305

PATIENT
  Age: 60 Year
  Sex: Male
  Weight: 68 kg

DRUGS (6)
  1. LIPITOR [Suspect]
     Indication: HYPERLIPIDAEMIA
     Dosage: 10 MG (DAILY), ORAL
     Route: 048
     Dates: start: 20040117, end: 20040131
  2. AMLODIPINE BESYLATE [Concomitant]
  3. WARFARIN POTASSIUM (WARFARIN POTASSIUM) [Concomitant]
  4. BEZAFIBRATE (BEZAFIBRATE) [Concomitant]
  5. ALLOPURINOL [Concomitant]
  6. URSODEOXYCHOLIC ACID (URSODEOXYCHOLIC ACID) [Concomitant]

REACTIONS (4)
  - ALANINE AMINOTRANSFERASE INCREASED [None]
  - ASPARTATE AMINOTRANSFERASE INCREASED [None]
  - BLOOD BILIRUBIN INCREASED [None]
  - LOW DENSITY LIPOPROTEIN DECREASED [None]
